FAERS Safety Report 17049437 (Version 1)
Quarter: 2019Q4

REPORT INFORMATION
  Report Type: Spontaneous
  Country: US (occurrence: US)
  Receive Date: 20191021
  Receipt Date: 20191021
  Transmission Date: 20200122
  Serious: No
  Sender: FDA-Public Use
  Company Number: None

PATIENT
  Sex: Male

DRUGS (1)
  1. TEMOZOLOMIDE ++# 140MG SANDOZ [Suspect]
     Active Substance: TEMOZOLOMIDE
     Indication: GASTROINTESTINAL NEOPLASM
     Route: 048
     Dates: start: 20190919

REACTIONS (3)
  - Fatigue [None]
  - Muscle spasms [None]
  - Product use issue [None]
